FAERS Safety Report 6676633-9 (Version None)
Quarter: 2010Q2

REPORT INFORMATION
  Report Type: 
  Country: None (occurrence: None)
  Receive Date: 20100409
  Receipt Date: 20100409
  Transmission Date: 20101027
  Serious: No
  Sender: FDA-Public Use
  Company Number: None

PATIENT
  Sex: Female
  Weight: 68.0396 kg

DRUGS (2)
  1. AMLODIPINE [Suspect]
     Indication: HYPERTENSION
  2. ZESTORETIC [Suspect]

REACTIONS (8)
  - ABASIA [None]
  - BLOOD PRESSURE INCREASED [None]
  - BONE DISORDER [None]
  - DIZZINESS [None]
  - DYSSTASIA [None]
  - MYALGIA [None]
  - PAIN [None]
  - VISUAL IMPAIRMENT [None]
